FAERS Safety Report 24925588 (Version 1)
Quarter: 2025Q1

REPORT INFORMATION
  Report Type: Report from Study
  Country: US (occurrence: US)
  Receive Date: 20250204
  Receipt Date: 20250204
  Transmission Date: 20250409
  Serious: No
  Sender: EXELIXIS
  Company Number: US-EXELIXIS-CABO-24076512

PATIENT
  Sex: Male
  Weight: 71.655 kg

DRUGS (4)
  1. CABOMETYX [Suspect]
     Active Substance: CABOZANTINIB S-MALATE
     Indication: Renal cancer
     Dosage: 40 MG, QD
     Route: 048
     Dates: start: 20230526
  2. EVEROLIMUS [Suspect]
     Active Substance: EVEROLIMUS
     Indication: Renal cancer
  3. EVEROLIMUS [Suspect]
     Active Substance: EVEROLIMUS
  4. LENVIMA [Concomitant]
     Active Substance: LENVATINIB

REACTIONS (1)
  - Adverse drug reaction [Unknown]
